FAERS Safety Report 12589905 (Version 1)
Quarter: 2016Q3

REPORT INFORMATION
  Report Type: Spontaneous
  Country: GB (occurrence: GB)
  Receive Date: 20160725
  Receipt Date: 20160725
  Transmission Date: 20161109
  Serious: Yes (Hospitalization, Other)
  Sender: FDA-Public Use
  Company Number: GB-PFIZER INC-2016356388

PATIENT
  Age: 71 Year
  Sex: Female

DRUGS (4)
  1. LINCOMYCIN. [Interacting]
     Active Substance: LINCOMYCIN
     Indication: ABDOMINAL ABSCESS
     Dosage: 300 MG, 4X/DAY (EVERY 6 HOURS)
     Route: 030
  2. GENTAMICIN SULFATE. [Interacting]
     Active Substance: GENTAMICIN SULFATE
     Indication: BACTERAEMIA
  3. GENTAMICIN SULFATE. [Suspect]
     Active Substance: GENTAMICIN SULFATE
     Indication: ABDOMINAL ABSCESS
     Dosage: 80 MG, 3X/DAY (EVERY 8 HOURS)
     Route: 042
  4. LINCOMYCIN. [Interacting]
     Active Substance: LINCOMYCIN
     Indication: BACTERAEMIA

REACTIONS (3)
  - Drug interaction [Unknown]
  - Ototoxicity [Unknown]
  - Tubulointerstitial nephritis [Recovered/Resolved]
